FAERS Safety Report 6045919-3 (Version None)
Quarter: 2009Q1

REPORT INFORMATION
  Report Type: 
  Country: None (occurrence: None)
  Receive Date: 20090116
  Receipt Date: 20090108
  Transmission Date: 20090719
  Serious: Yes (Hospitalization)
  Sender: FDA-Public Use
  Company Number: 100#08#2009-00072

PATIENT
  Age: 26 Year
  Sex: Female

DRUGS (1)
  1. CIPROFLOXACIN [Suspect]
     Indication: BRONCHITIS
     Dosage: 500 MG TWICE DAILY

REACTIONS (7)
  - CHOLESTASIS [None]
  - CUSHING'S SYNDROME [None]
  - DRUG INEFFECTIVE [None]
  - HEPATITIS [None]
  - IATROGENIC INJURY [None]
  - STEVENS-JOHNSON SYNDROME [None]
  - VANISHING BILE DUCT SYNDROME [None]
